FAERS Safety Report 17241909 (Version 2)
Quarter: 2020Q1

REPORT INFORMATION
  Report Type: Spontaneous
  Country: US (occurrence: US)
  Receive Date: 20200107
  Receipt Date: 20200109
  Transmission Date: 20200409
  Serious: Yes (Death, Hospitalization)
  Sender: FDA-Public Use
  Company Number: US-HORIZON-KRY-0014-2020

PATIENT
  Age: 68 Year
  Sex: Male

DRUGS (1)
  1. KRYSTEXXA [Suspect]
     Active Substance: PEGLOTICASE
     Indication: GOUT
     Dosage: 8 MG EVERY 2 WEEKS
     Route: 042
     Dates: start: 20190502, end: 20191204

REACTIONS (2)
  - Death [Fatal]
  - Stent placement [Unknown]

NARRATIVE: CASE EVENT DATE: 20191219
